FAERS Safety Report 8389906-9 (Version None)
Quarter: 2012Q2

REPORT INFORMATION
  Report Type: 
  Country: None (occurrence: None)
  Receive Date: 20120522
  Receipt Date: 20120511
  Transmission Date: 20120825
  Serious: Yes (Hospitalization)
  Sender: FDA-Public Use
  Company Number: ENTC2012-0081

PATIENT
  Age: 73 Year
  Sex: Male

DRUGS (9)
  1. ZOPICLONE [Concomitant]
  2. MACROGOL 4000 [Concomitant]
  3. CITALOPRAM HYDROBROMIDE [Concomitant]
  4. MODOPAR (LEVODOPA) [Suspect]
     Indication: PARKINSON'S DISEASE
     Dosage: 1 DF DAILY; 100/25 MG, ORAL
     Route: 048
     Dates: end: 20120120
  5. STALEVO 100 [Suspect]
     Indication: PARKINSON'S DISEASE
     Dosage: 5 DF DAILY; 150/37.5/200 MG ORAL, DOSE DECREASED, ORAL
     Route: 048
     Dates: end: 20120120
  6. STALEVO 100 [Suspect]
     Indication: PARKINSON'S DISEASE
     Dosage: 5 DF DAILY; 150/37.5/200 MG ORAL, DOSE DECREASED, ORAL
     Route: 048
     Dates: start: 20120127
  7. TRAMADOL HYDROCHLORIDE [Suspect]
     Indication: PAIN
     Dosage: 1 DF DAILY, 150 MG, ORAL
     Route: 048
     Dates: end: 20120120
  8. TRIVASTAL LP (PIRIBEDIL) [Suspect]
     Indication: PARKINSON'S DISEASE
     Dosage: 50 MG (1 DOSAGE FORM, 3 IN 1 D), ORAL, ORAL
     Route: 048
     Dates: start: 20120120, end: 20120124
  9. TRIVASTAL LP (PIRIBEDIL) [Suspect]
     Indication: PARKINSON'S DISEASE
     Dosage: 50 MG (1 DOSAGE FORM, 3 IN 1 D), ORAL, ORAL
     Route: 048
     Dates: end: 20120120

REACTIONS (12)
  - CONFUSIONAL STATE [None]
  - BLOOD SODIUM INCREASED [None]
  - AGGRESSION [None]
  - INCOHERENT [None]
  - HALLUCINATION [None]
  - BLOOD PRESSURE DECREASED [None]
  - DISORIENTATION [None]
  - PSYCHOMOTOR HYPERACTIVITY [None]
  - CONSTIPATION [None]
  - BLOOD POTASSIUM DECREASED [None]
  - DYSKINESIA [None]
  - AGITATION [None]
